FAERS Safety Report 20240220 (Version 1)
Quarter: 2021Q4

REPORT INFORMATION
  Report Type: Report from Study
  Country: IN (occurrence: IN)
  Receive Date: 20211228
  Receipt Date: 20211228
  Transmission Date: 20220303
  Serious: Yes (Other)
  Sender: FDA-Public Use
  Company Number: IN-BRISTOL-MYERS SQUIBB COMPANY-BMS-2021-142292

PATIENT
  Age: 72 Year
  Sex: Female
  Weight: 64.4 kg

DRUGS (7)
  1. APIXABAN [Suspect]
     Active Substance: APIXABAN
     Indication: Cerebrovascular accident prophylaxis
     Dosage: 2.5 MILLIGRAM, BID
     Route: 048
     Dates: start: 202109
  2. COVANCE [LOSARTAN POTASSIUM] [Concomitant]
     Indication: Product used for unknown indication
     Dosage: 50 UNIT NOT SPECIFIED, QD
     Route: 065
  3. NEXITO PLUS [Concomitant]
     Indication: Product used for unknown indication
     Dosage: 0.5 DOSAGE FORM, QD
     Route: 065
  4. PRAMIPEXOLE DIHYDROCHLORIDE [Concomitant]
     Active Substance: PRAMIPEXOLE DIHYDROCHLORIDE
     Indication: Product used for unknown indication
     Dosage: 0.5 UNIT NOT SPECIFIED, QD
     Route: 065
  5. SYNDOPA PLUS [Concomitant]
     Indication: Product used for unknown indication
     Dosage: 1.5 DOSAGE FORM, TID
     Route: 065
  6. PLAVIX [Concomitant]
     Active Substance: CLOPIDOGREL BISULFATE
     Indication: Product used for unknown indication
     Dosage: 75 UNIT NOT SPECIFIED, QD
     Route: 065
  7. ROSEDAY [Concomitant]
     Indication: Product used for unknown indication
     Dosage: 10 UNIT NOT SPECIFIED, QD
     Route: 065

REACTIONS (9)
  - Crohn^s disease [Unknown]
  - Atrial fibrillation [Unknown]
  - Neuropathy peripheral [Unknown]
  - Transient ischaemic attack [Unknown]
  - Pulmonary hypertension [Unknown]
  - Cardiomegaly [Unknown]
  - Blood pressure increased [Unknown]
  - Parkinsonism [Unknown]
  - Prescribed underdose [Unknown]

NARRATIVE: CASE EVENT DATE: 20211201
